FAERS Safety Report 18382073 (Version 1)
Quarter: 2020Q4

REPORT INFORMATION
  Report Type: Spontaneous
  Country: US (occurrence: US)
  Receive Date: 20201013
  Receipt Date: 20201013
  Transmission Date: 20210114
  Serious: Yes (Other)
  Sender: FDA-Public Use
  Company Number: None

PATIENT
  Age: 87 Year
  Sex: Female

DRUGS (5)
  1. RANOLAZINE 500MG ER [Concomitant]
  2. METOPROLOL ER 100MG [Concomitant]
  3. CAPECITABINE. [Suspect]
     Active Substance: CAPECITABINE
     Indication: NEOPLASM MALIGNANT
     Route: 048
     Dates: start: 20200831
  4. DILTIAZEM CD 240MG [Concomitant]
  5. NITROGLYCERIN 0.4MG/HR PATCH [Concomitant]

REACTIONS (2)
  - Lethargy [None]
  - Gingival bleeding [None]
